FAERS Safety Report 11916421 (Version 1)
Quarter: 2016Q1

REPORT INFORMATION
  Report Type: Spontaneous
  Country: US (occurrence: US)
  Receive Date: 20160114
  Receipt Date: 20160114
  Transmission Date: 20160526
  Serious: Yes (Other)
  Sender: FDA-Public Use
  Company Number: US-PFIZER INC-2016008629

PATIENT
  Age: 55 Year
  Sex: Male
  Weight: 82 kg

DRUGS (2)
  1. ADVIL PM [Suspect]
     Active Substance: DIPHENHYDRAMINE CITRATE\IBUPROFEN
     Indication: PAIN
     Dosage: 1 LIQUIGEL, UNK
  2. ADVIL PM [Suspect]
     Active Substance: DIPHENHYDRAMINE CITRATE\IBUPROFEN
     Indication: INSOMNIA

REACTIONS (5)
  - Dysphagia [Not Recovered/Not Resolved]
  - Product difficult to swallow [Not Recovered/Not Resolved]
  - Choking [Not Recovered/Not Resolved]
  - Nocturia [Not Recovered/Not Resolved]
  - Foreign body [Not Recovered/Not Resolved]

NARRATIVE: CASE EVENT DATE: 201512
